FAERS Safety Report 9743290 (Version 2)
Quarter: 2013Q4

REPORT INFORMATION
  Report Type: Spontaneous
  Country: US (occurrence: US)
  Receive Date: 20131210
  Receipt Date: 20131210
  Transmission Date: 20140711
  Serious: No
  Sender: FDA-Public Use
  Company Number: US-GILEAD-2009-0025506

PATIENT
  Sex: Female
  Weight: 76.66 kg

DRUGS (7)
  1. LETAIRIS [Suspect]
     Indication: PULMONARY ARTERIAL HYPERTENSION
     Route: 048
     Dates: start: 20090826, end: 20100104
  2. FUROSEMIDE [Concomitant]
  3. TRAZODONE [Concomitant]
  4. CLONAZEPAM [Concomitant]
  5. METOLAZONE [Concomitant]
  6. METOPROLOL [Concomitant]
  7. TRAMADOL [Concomitant]

REACTIONS (5)
  - Fatigue [Unknown]
  - Local swelling [Unknown]
  - Drug ineffective [Unknown]
  - Pain [Unknown]
  - Fibromyalgia [Unknown]
